FAERS Safety Report 6708140-9 (Version None)
Quarter: 2010Q2

REPORT INFORMATION
  Report Type: 
  Country: None (occurrence: None)
  Receive Date: 20100503
  Receipt Date: 20090708
  Transmission Date: 20101027
  Serious: No
  Sender: FDA-Public Use
  Company Number: US-ASTRAZENECA-2006UW02713

PATIENT
  Age: 69 Year
  Sex: Male
  Weight: 88.5 kg

DRUGS (5)
  1. NEXIUM [Suspect]
     Indication: BARRETT'S OESOPHAGUS
     Route: 048
     Dates: start: 20060101, end: 20060201
  2. NEXIUM [Suspect]
     Route: 048
     Dates: start: 20060201
  3. NEXIUM [Suspect]
     Route: 048
     Dates: start: 20060101
  4. LISINOPRIL [Concomitant]
  5. METOPROLOL [Concomitant]

REACTIONS (10)
  - ABDOMINAL DISCOMFORT [None]
  - ABDOMINAL PAIN [None]
  - ABDOMINAL PAIN UPPER [None]
  - DIARRHOEA [None]
  - DRY MOUTH [None]
  - DRY THROAT [None]
  - FLATULENCE [None]
  - HYPERAESTHESIA [None]
  - INCREASED UPPER AIRWAY SECRETION [None]
  - SWELLING FACE [None]
